FAERS Safety Report 18143717 (Version 1)
Quarter: 2020Q3

REPORT INFORMATION
  Report Type: Spontaneous
  Country: US (occurrence: US)
  Receive Date: 20200813
  Receipt Date: 20200813
  Transmission Date: 20201103
  Serious: No
  Sender: FDA-Public Use
  Company Number: US-009507513-2008USA004663

PATIENT
  Age: 8 Year
  Weight: 20.3 kg

DRUGS (2)
  1. NOXAFIL [Suspect]
     Active Substance: POSACONAZOLE
     Indication: FUNGAL INFECTION
     Dosage: 9.9 MG/KG/DAY, 200 MILLIGRAM DAILY
     Route: 048
  2. NOXAFIL [Suspect]
     Active Substance: POSACONAZOLE
     Dosage: 14.7 MG/KG/DAY, AFTER ADJUSTMENT
     Route: 048

REACTIONS (1)
  - Product use in unapproved indication [Unknown]
